FAERS Safety Report 21285289 (Version 3)
Quarter: 2022Q4

REPORT INFORMATION
  Report Type: Spontaneous
  Country: IT (occurrence: IT)
  Receive Date: 20220902
  Receipt Date: 20221021
  Transmission Date: 20230112
  Serious: Yes (Other)
  Sender: FDA-Public Use
  Company Number: IT-MYLANLABS-2022M1078672

PATIENT
  Age: 86 Year
  Sex: Female

DRUGS (12)
  1. BISOPROLOL [Suspect]
     Active Substance: BISOPROLOL
     Indication: Product used for unknown indication
     Dosage: UNK
     Route: 065
  2. CANDESARTAN CILEXETIL\HYDROCHLOROTHIAZIDE [Suspect]
     Active Substance: CANDESARTAN CILEXETIL\HYDROCHLOROTHIAZIDE
     Indication: Product used for unknown indication
     Dosage: UNK
     Route: 065
  3. DIAZEPAM [Suspect]
     Active Substance: DIAZEPAM
     Indication: Product used for unknown indication
     Dosage: 5 MILLIGRAM
     Route: 065
  4. FEBUXOSTAT [Suspect]
     Active Substance: FEBUXOSTAT
     Indication: Product used for unknown indication
     Dosage: UNK
     Route: 065
  5. ONDANSETRON [Suspect]
     Active Substance: ONDANSETRON
     Indication: Nausea
     Dosage: UNK
     Route: 065
  6. ONDANSETRON [Suspect]
     Active Substance: ONDANSETRON
     Indication: Constipation
  7. SIMVASTATIN [Suspect]
     Active Substance: SIMVASTATIN
     Indication: Product used for unknown indication
     Dosage: UNK
     Route: 048
  8. BIMATOPROST\TIMOLOL [Suspect]
     Active Substance: BIMATOPROST\TIMOLOL
     Indication: Product used for unknown indication
     Dosage: UNK
     Route: 031
  9. CLEBOPRIDE [Suspect]
     Active Substance: CLEBOPRIDE
     Indication: Nausea
     Dosage: UNK
     Route: 065
  10. CLEBOPRIDE [Suspect]
     Active Substance: CLEBOPRIDE
     Indication: Constipation
  11. SENNA LEAF [Suspect]
     Active Substance: SENNA LEAF
     Indication: Constipation
     Dosage: UNK
     Route: 065
  12. SENNA LEAF [Suspect]
     Active Substance: SENNA LEAF
     Indication: Nausea

REACTIONS (12)
  - Sight disability [Unknown]
  - Agitation [Unknown]
  - Gait disturbance [Unknown]
  - Constipation [Recovered/Resolved]
  - Language disorder [Unknown]
  - Abdominal pain [Recovered/Resolved]
  - Pyrexia [Recovered/Resolved]
  - Insomnia [Unknown]
  - Affect lability [Unknown]
  - Nausea [Unknown]
  - Speech disorder [Recovered/Resolved]
  - Off label use [Unknown]
